FAERS Safety Report 16161113 (Version 1)
Quarter: 2019Q2

REPORT INFORMATION
  Report Type: Spontaneous
  Country: HR (occurrence: HR)
  Receive Date: 20190405
  Receipt Date: 20190405
  Transmission Date: 20190711
  Serious: Yes (Other)
  Sender: FDA-Public Use
  Company Number: HR-ABBVIE-19K-216-2729838-00

PATIENT
  Age: 9 Year
  Sex: Male
  Weight: 36 kg

DRUGS (3)
  1. HUMIRA [Suspect]
     Active Substance: ADALIMUMAB
     Indication: JUVENILE IDIOPATHIC ARTHRITIS
     Route: 058
     Dates: start: 20181023, end: 20190213
  2. MOVALIS [Concomitant]
     Active Substance: MELOXICAM
     Indication: JUVENILE IDIOPATHIC ARTHRITIS
     Route: 048
     Dates: start: 2012
  3. UNITROPIC [Concomitant]
     Indication: IRIDOCYCLITIS
     Route: 031
     Dates: start: 2015

REACTIONS (3)
  - Anaphylactic reaction [Recovered/Resolved]
  - Application site swelling [Recovered/Resolved]
  - Erythema [Recovered/Resolved]

NARRATIVE: CASE EVENT DATE: 2019
